FAERS Safety Report 24360699 (Version 2)
Quarter: 2024Q4

REPORT INFORMATION
  Report Type: Spontaneous
  Country: US (occurrence: US)
  Receive Date: 20240925
  Receipt Date: 20241003
  Transmission Date: 20250115
  Serious: No
  Sender: Haleon PLC
  Company Number: US-HALEON-2197424

PATIENT
  Sex: Female
  Weight: 63.503 kg

DRUGS (2)
  1. ADVIL LIQUI-GELS [Suspect]
     Active Substance: IBUPROFEN
     Indication: Oropharyngeal pain
     Dosage: DAILY (TWO CAPSULES), DOSAGE: 400MG
     Dates: start: 20240906, end: 20240917
  2. ADVIL LIQUI-GELS [Suspect]
     Active Substance: IBUPROFEN
     Indication: Arthralgia

REACTIONS (5)
  - Hypoaesthesia oral [Unknown]
  - Oral discomfort [Unknown]
  - Throat irritation [Unknown]
  - Product use in unapproved indication [Unknown]
  - Oropharyngeal discomfort [Unknown]
